FAERS Safety Report 6567548-5 (Version None)
Quarter: 2010Q1

REPORT INFORMATION
  Report Type: 
  Country: None (occurrence: None)
  Receive Date: 20100202
  Receipt Date: 20100120
  Transmission Date: 20100710
  Serious: Yes (Hospitalization)
  Sender: FDA-Public Use
  Company Number: AT-ELI_LILLY_AND_COMPANY-AT201001004219

PATIENT
  Age: 62 Year
  Sex: Female
  Weight: 97 kg

DRUGS (32)
  1. CYMBALTA [Suspect]
     Route: 065
     Dates: end: 20090911
  2. CYMBALTA [Suspect]
     Dosage: 120 MG, DAILY (1/D)
     Route: 065
     Dates: start: 20090912, end: 20090914
  3. CYMBALTA [Suspect]
     Dosage: 60 MG, DAILY (1/D)
     Route: 065
     Dates: start: 20090915
  4. DIAMICRON [Concomitant]
     Dosage: 1 D/F, UNKNOWN
     Route: 065
     Dates: end: 20090928
  5. GLUCOPHAGE [Concomitant]
     Dosage: 2 G, UNKNOWN
     Route: 065
     Dates: end: 20090927
  6. ISOFLURANE [Concomitant]
     Dosage: 90 MG, UNKNOWN
     Route: 065
  7. NEXIUM [Concomitant]
     Dosage: 40 MG, UNKNOWN
     Route: 065
     Dates: start: 20090911, end: 20090928
  8. DEFLAMAT                           /00372302/ [Concomitant]
     Dosage: 75 MG, UNKNOWN
     Route: 065
     Dates: start: 20090910, end: 20090925
  9. MEXALEN [Concomitant]
     Dosage: 1500 MG, UNKNOWN
     Route: 065
     Dates: start: 20090922, end: 20090922
  10. MEXALEN [Concomitant]
     Dosage: 1000 MG, UNKNOWN
     Route: 065
     Dates: start: 20090923, end: 20090924
  11. NOVALGIN [Concomitant]
     Dosage: 20 GTT, UNKNOWN
     Route: 065
     Dates: start: 20090923, end: 20090924
  12. METOCLOPRAMIDE HYDROCHLORIDE [Concomitant]
     Dosage: 20 GTT, UNKNOWN
     Route: 065
     Dates: start: 20090925, end: 20090925
  13. METOCLOPRAMIDE HYDROCHLORIDE [Concomitant]
     Dosage: 40 GTT, UNKNOWN
     Route: 065
     Dates: start: 20090926, end: 20090927
  14. PANTOLOC                           /01263201/ [Concomitant]
     Dosage: 40 MG, UNKNOWN
     Route: 042
     Dates: start: 20090930
  15. QUILONORM                               /AUT/ [Concomitant]
     Dosage: 675 MG, UNKNOWN
     Route: 065
     Dates: end: 20090921
  16. QUILONORM                               /AUT/ [Concomitant]
     Dosage: 450 MG, UNKNOWN
     Route: 065
     Dates: start: 20090922, end: 20090928
  17. QUILONORM                               /AUT/ [Concomitant]
     Dosage: 225 MG, UNKNOWN
     Route: 065
     Dates: start: 20090930
  18. GEROLAMIC [Concomitant]
     Dosage: 200 MG, UNKNOWN
     Route: 065
  19. WELLBUTRIN [Concomitant]
     Dosage: 300 MG, UNKNOWN
     Route: 065
  20. SEROQUEL [Concomitant]
     Dosage: 300 MG, UNKNOWN
     Route: 065
     Dates: end: 20090927
  21. DELPRAL [Concomitant]
     Dosage: 400 MG, UNKNOWN
     Route: 065
  22. RIVOTRIL [Concomitant]
     Dosage: 0.5 MG, UNKNOWN
     Route: 065
     Dates: end: 20090908
  23. RIVOTRIL [Concomitant]
     Dosage: 0.75 MG, UNKNOWN
     Route: 065
     Dates: start: 20090909, end: 20090909
  24. RIVOTRIL [Concomitant]
     Dosage: 1 MG, UNKNOWN
     Route: 065
     Dates: start: 20090910, end: 20090926
  25. RIVOTRIL [Concomitant]
     Dosage: 0.5 MG, UNKNOWN
     Route: 065
     Dates: start: 20090927, end: 20090928
  26. RIVOTRIL [Concomitant]
     Dosage: 0.25 MG, UNKNOWN
     Route: 065
     Dates: start: 20090929, end: 20090929
  27. ABILIFY [Concomitant]
     Dosage: 15 MG, UNKNOWN
     Route: 065
     Dates: end: 20090928
  28. LYRICA [Concomitant]
     Dosage: 150 MG, UNKNOWN
     Route: 065
     Dates: start: 20090925, end: 20090928
  29. NEUROBION                          /00176001/ [Concomitant]
     Dosage: 3 D/F, UNKNOWN
     Route: 065
     Dates: end: 20090927
  30. AUGMENTIN '125' [Concomitant]
     Dosage: 3 G, UNKNOWN
     Route: 065
  31. LOVENOX [Concomitant]
     Dosage: 40 MG, UNKNOWN
     Route: 058
  32. THYREX [Concomitant]
     Dosage: 100 OR 125UG, ALTERNATING
     Route: 065

REACTIONS (2)
  - ILEUS [None]
  - OVERDOSE [None]
